FAERS Safety Report 20963984 (Version 4)
Quarter: 2022Q3

REPORT INFORMATION
  Report Type: Report from Study
  Country: US (occurrence: US)
  Receive Date: 20220615
  Receipt Date: 20220712
  Transmission Date: 20221027
  Serious: Yes (Hospitalization)
  Sender: FDA-Public Use
  Company Number: US-TAKEDA-2022TUS037659

PATIENT
  Sex: Female

DRUGS (3)
  1. MARIBAVIR [Suspect]
     Active Substance: MARIBAVIR
     Indication: Cytomegalovirus infection
     Dosage: 200 MILLIGRAM
     Route: 048
  2. MARIBAVIR [Suspect]
     Active Substance: MARIBAVIR
     Indication: Renal transplant
     Dosage: 400 MILLIGRAM, BID
     Route: 048
  3. MARIBAVIR [Suspect]
     Active Substance: MARIBAVIR
     Dosage: 200 MILLIGRAM, BID
     Route: 048
     Dates: start: 20220604

REACTIONS (4)
  - Pleural effusion [Unknown]
  - Hospitalisation [Unknown]
  - Inability to afford medication [Unknown]
  - Off label use [Unknown]
